FAERS Safety Report 4600798-3 (Version None)
Quarter: 2005Q1

REPORT INFORMATION
  Report Type: 
  Country: None (occurrence: None)
  Receive Date: 20050304
  Receipt Date: 20050223
  Transmission Date: 20050727
  Serious: Yes (Hospitalization)
  Sender: FDA-Public Use
  Company Number: 2005US000255

PATIENT
  Age: 34 Year
  Sex: Male
  Weight: 80 kg

DRUGS (6)
  1. PROGRAF [Suspect]
     Indication: PROPHYLAXIS AGAINST TRANSPLANT REJECTION
     Dosage: 30.00 MG, UID/QD, ORAL
     Route: 048
     Dates: start: 20040806
  2. PREDNISONE [Suspect]
     Indication: PROPHYLAXIS AGAINST TRANSPLANT REJECTION
     Dosage: 10.00 MG, UID/QD, ORAL
     Route: 048
     Dates: start: 20050210
  3. CELLCEPT [Suspect]
     Indication: PROPHYLAXIS AGAINST TRANSPLANT REJECTION
     Dosage: 2.00 G, UID/QD, ORAL
     Route: 048
     Dates: start: 20040708
  4. BACTRIM [Concomitant]
  5. RANITIDINE [Concomitant]
  6. PROPRANOLOL [Concomitant]

REACTIONS (1)
  - PYELONEPHRITIS ACUTE [None]
